FAERS Safety Report 14027980 (Version 1)
Quarter: 2017Q3

REPORT INFORMATION
  Report Type: Spontaneous
  Country: US (occurrence: None)
  Receive Date: 20170929
  Receipt Date: 20170929
  Transmission Date: 20171128
  Serious: Yes (Death)
  Sender: FDA-Public Use
  Company Number: None

PATIENT
  Age: 47 Year
  Sex: Male

DRUGS (10)
  1. TARCEVA [Suspect]
     Active Substance: ERLOTINIB HYDROCHLORIDE
     Indication: PANCREATIC CARCINOMA
     Route: 048
     Dates: end: 201709
  2. DEXAMETHASON [Concomitant]
     Active Substance: DEXAMETHASONE
  3. SPIRONOLACT [Concomitant]
     Active Substance: SPIRONOLACTONE
  4. ONDANSETRON [Concomitant]
     Active Substance: ONDANSETRON
  5. HYDROCOD/IBU [Concomitant]
  6. CHOLESTYRAM [Concomitant]
     Active Substance: CHOLESTYRAMINE
  7. LORAZEPAM. [Concomitant]
     Active Substance: LORAZEPAM
  8. GABAPENTIN. [Concomitant]
     Active Substance: GABAPENTIN
  9. METOCLOPRAM [Concomitant]
     Active Substance: METOCLOPRAMIDE
  10. FUROSEMIDE. [Concomitant]
     Active Substance: FUROSEMIDE

REACTIONS (2)
  - Disease complication [None]
  - Neoplasm malignant [None]

NARRATIVE: CASE EVENT DATE: 20170918
